FAERS Safety Report 5851576-9 (Version None)
Quarter: 2008Q3

REPORT INFORMATION
  Report Type: 
  Country: None (occurrence: None)
  Receive Date: 20080820
  Receipt Date: 20080812
  Transmission Date: 20090109
  Serious: Yes (Other)
  Sender: FDA-Public Use
  Company Number: US-ASTRAZENECA-2007UW20276

PATIENT
  Sex: Female

DRUGS (2)
  1. ARIMIDEX [Suspect]
     Indication: BREAST CANCER STAGE I
     Route: 048
     Dates: start: 20070401
  2. TAMOXIFEN CITRATE [Suspect]
     Indication: BREAST CANCER STAGE I
     Route: 048
     Dates: start: 20040801, end: 20061001

REACTIONS (6)
  - BONE NEOPLASM MALIGNANT [None]
  - BREAST MASS [None]
  - METASTASES TO LIVER [None]
  - METASTASES TO LUNG [None]
  - NECK MASS [None]
  - VAGINAL HAEMORRHAGE [None]
